FAERS Safety Report 12165378 (Version 6)
Quarter: 2018Q2

REPORT INFORMATION
  Report Type: Spontaneous
  Country: FR (occurrence: FR)
  Receive Date: 20160309
  Receipt Date: 20180423
  Transmission Date: 20180711
  Serious: Yes (Hospitalization, Congenital Anomaly)
  Sender: FDA-Public Use
  Company Number: FR-ABBVIE-16P-056-1577171-00

PATIENT
  Sex: Male

DRUGS (1)
  1. DEPAKINE CHRONO [Suspect]
     Active Substance: VALPROATE SODIUM
     Indication: MATERNAL EXPOSURE TIMING UNSPECIFIED
     Route: 064

REACTIONS (24)
  - Psychomotor retardation [Not Recovered/Not Resolved]
  - Foetal exposure during pregnancy [Unknown]
  - Eating disorder [Unknown]
  - Asthma [Unknown]
  - Abnormal behaviour [Not Recovered/Not Resolved]
  - Congenital oral malformation [Unknown]
  - Bronchiolitis [Unknown]
  - Speech disorder [Unknown]
  - Bronchopulmonary dysplasia [Unknown]
  - Hypertrichosis [Unknown]
  - Dysmorphism [Unknown]
  - Congenital anomaly [Not Recovered/Not Resolved]
  - Mood swings [Unknown]
  - Cognitive disorder [Not Recovered/Not Resolved]
  - Congenital neurological disorder [Not Recovered/Not Resolved]
  - Enlarged clitoris [Unknown]
  - Dyslexia [Not Recovered/Not Resolved]
  - Low birth weight baby [Unknown]
  - Dysgraphia [Unknown]
  - Pectus excavatum [Unknown]
  - Disturbance in social behaviour [Unknown]
  - Premature baby [Unknown]
  - Anger [Unknown]
  - Learning disorder [Unknown]
